FAERS Safety Report 6665717-7 (Version None)
Quarter: 2010Q2

REPORT INFORMATION
  Report Type: 
  Country: None (occurrence: None)
  Receive Date: 20100402
  Receipt Date: 20100323
  Transmission Date: 20101027
  Serious: Yes (Hospitalization)
  Sender: FDA-Public Use
  Company Number: JP-JNJFOC-20090405794

PATIENT
  Sex: Male

DRUGS (12)
  1. PREZISTA [Suspect]
     Indication: DRUG USE FOR UNKNOWN INDICATION
     Route: 048
  2. PREZISTA [Suspect]
     Route: 048
  3. NORVIR [Concomitant]
  4. TRUVADA [Concomitant]
  5. ADVATE [Concomitant]
     Indication: FACTOR VIII DEFICIENCY
  6. VIDEX [Concomitant]
  7. VIREAD [Concomitant]
  8. ISENTRESS [Concomitant]
     Route: 048
  9. LOPEMIN [Concomitant]
     Indication: DIARRHOEA
     Route: 048
  10. LENDORMIN [Concomitant]
     Indication: INSOMNIA
     Route: 048
  11. ADVATE [Concomitant]
     Dosage: 5-10 TIMES PER DAY
     Route: 050
  12. LOPERAMIDE [Concomitant]
     Indication: DIARRHOEA
     Route: 048

REACTIONS (4)
  - CHOLELITHIASIS [None]
  - HYPERBILIRUBINAEMIA [None]
  - LIVER DISORDER [None]
  - PANCREATIC CARCINOMA [None]
